FAERS Safety Report 16560015 (Version 1)
Quarter: 2019Q3

REPORT INFORMATION
  Report Type: Spontaneous
  Country: US (occurrence: US)
  Receive Date: 20190710
  Receipt Date: 20190710
  Transmission Date: 20191004
  Serious: Yes (Disabling)
  Sender: FDA-Public Use
  Company Number: None

PATIENT
  Age: 76 Year
  Sex: Male
  Weight: 87.75 kg

DRUGS (4)
  1. AVODART [Concomitant]
     Active Substance: DUTASTERIDE
  2. DOXYCYCLINE HYCLATE 100 MG [Suspect]
     Active Substance: DOXYCYCLINE HYCLATE
     Indication: LYME DISEASE
     Dosage: ?          QUANTITY:100 TABLET(S);?
     Route: 048
     Dates: start: 20190617, end: 20190624
  3. ZANTAC [Concomitant]
     Active Substance: RANITIDINE HYDROCHLORIDE
  4. UROXATRAL [Concomitant]
     Active Substance: ALFUZOSIN HYDROCHLORIDE

REACTIONS (2)
  - Tremor [None]
  - Balance disorder [None]

NARRATIVE: CASE EVENT DATE: 20190619
